FAERS Safety Report 5143717-6 (Version None)
Quarter: 2006Q4

REPORT INFORMATION
  Report Type: 
  Country: None (occurrence: None)
  Receive Date: 20061103
  Receipt Date: 20061024
  Transmission Date: 20070319
  Serious: Yes (Other)
  Sender: FDA-Public Use
  Company Number: US-MERCK-0611USA00241

PATIENT
  Age: 77 Year
  Sex: Female

DRUGS (6)
  1. FOSAMAX [Suspect]
     Route: 048
     Dates: start: 20061021
  2. JUVELA NICOTINATE [Concomitant]
     Route: 048
  3. PURSENNID [Concomitant]
     Route: 048
  4. BIOFERMIN [Concomitant]
     Route: 048
  5. CYANOCOBALAMIN [Concomitant]
     Route: 048
  6. KETOPROFEN [Concomitant]
     Route: 061

REACTIONS (4)
  - ARTHRALGIA [None]
  - CONVULSION [None]
  - MUSCULOSKELETAL CHEST PAIN [None]
  - PALPITATIONS [None]
